FAERS Safety Report 7005592-4 (Version None)
Quarter: 2010Q3

REPORT INFORMATION
  Report Type: 
  Country: None (occurrence: None)
  Receive Date: 20100921
  Receipt Date: 20100913
  Transmission Date: 20110219
  Serious: Yes (Congenital Anomaly)
  Sender: FDA-Public Use
  Company Number: A0880847B

PATIENT
  Sex: Male
  Weight: 2.6 kg

DRUGS (2)
  1. WELLBUTRIN [Suspect]
     Dosage: 75MG PER DAY
     Dates: start: 20071201
  2. PRENATAL VITAMINS [Concomitant]

REACTIONS (8)
  - ASTHENIA [None]
  - BODY HEIGHT BELOW NORMAL [None]
  - CONGENITAL ANOMALY [None]
  - DEVELOPMENTAL DELAY [None]
  - DRUG EXPOSURE DURING PREGNANCY [None]
  - INABILITY TO CRAWL [None]
  - MOBILITY DECREASED [None]
  - SMALL FOR DATES BABY [None]
